FAERS Safety Report 6046954-1 (Version None)
Quarter: 2009Q1

REPORT INFORMATION
  Report Type: 
  Country: None (occurrence: None)
  Receive Date: 20090115
  Receipt Date: 20090108
  Transmission Date: 20090719
  Serious: Yes (Hospitalization)
  Sender: FDA-Public Use
  Company Number: 200914523

PATIENT
  Age: 74 Year
  Sex: Female

DRUGS (9)
  1. VIVAGLOBIN [Suspect]
     Dosage: SEE IMAGE
     Route: 058
     Dates: start: 20081124, end: 20081124
  2. VIVAGLOBIN [Suspect]
     Dosage: SEE IMAGE
     Route: 058
     Dates: start: 20081202, end: 20081202
  3. VIVAGLOBIN [Suspect]
     Dosage: SEE IMAGE
     Route: 058
     Dates: start: 20081210, end: 20081210
  4. VIVAGLOBIN [Suspect]
     Dosage: SEE IMAGE
     Route: 058
     Dates: start: 20081224, end: 20081224
  5. VIVAGLOBIN [Suspect]
     Dosage: SEE IMAGE
     Route: 058
     Dates: start: 20081228, end: 20081228
  6. VIVAGLOBIN [Suspect]
     Dosage: SEE IMAGE
     Route: 058
     Dates: start: 20081231, end: 20081231
  7. VIVAGLOBIN [Suspect]
     Dosage: SEE IMAGE
     Route: 058
     Dates: start: 20090103, end: 20090103
  8. SALAGEN [Concomitant]
  9. LYRICA [Concomitant]

REACTIONS (4)
  - BLOOD POTASSIUM DECREASED [None]
  - BLOOD SODIUM DECREASED [None]
  - HEADACHE [None]
  - HYPERTENSION [None]
